FAERS Safety Report 4696843-X (Version None)
Quarter: 2005Q2

REPORT INFORMATION
  Report Type: 
  Country: None (occurrence: None)
  Receive Date: 20050620
  Receipt Date: 20050614
  Transmission Date: 20051028
  Serious: Yes (Hospitalization, Other)
  Sender: FDA-Public Use
  Company Number: DEWYE742714JUN05

PATIENT
  Age: 51 Year
  Sex: Male

DRUGS (1)
  1. RAPAMUNE [Suspect]
     Indication: PROPHYLAXIS AGAINST TRANSPLANT REJECTION
     Dosage: 6 MG OR 4 MG ORAL
     Route: 048
     Dates: start: 20050510, end: 20050101

REACTIONS (1)
  - ALVEOLITIS ALLERGIC [None]
